FAERS Safety Report 5867679-9 (Version None)
Quarter: 2008Q3

REPORT INFORMATION
  Report Type: 
  Country: None (occurrence: None)
  Receive Date: 20080902
  Receipt Date: 20080116
  Transmission Date: 20090109
  Serious: No
  Sender: FDA-Public Use
  Company Number: US-ABBOTT-08P-163-0434118-00

PATIENT
  Age: 77 Year
  Sex: Female

DRUGS (3)
  1. DEPAKOTE ER [Suspect]
     Indication: BIPOLAR DISORDER
     Route: 048
     Dates: end: 20080116
  2. DEPAKOTE ER [Suspect]
     Route: 048
     Dates: start: 20080116, end: 20080116
  3. DEPAKOTE ER [Suspect]
     Route: 048
     Dates: start: 20080117

REACTIONS (1)
  - DRUG LEVEL INCREASED [None]
